FAERS Safety Report 16051926 (Version 3)
Quarter: 2019Q2

REPORT INFORMATION
  Report Type: Spontaneous
  Country: US (occurrence: US)
  Receive Date: 20190308
  Receipt Date: 20190627
  Transmission Date: 20190711
  Serious: Yes (Other)
  Sender: FDA-Public Use
  Company Number: US-SA-2019SA063777

PATIENT
  Age: 55 Year
  Sex: Male

DRUGS (2)
  1. PRALUENT [Suspect]
     Active Substance: ALIROCUMAB
     Dosage: UNK
     Route: 058
     Dates: start: 201902
  2. ZETIA [Concomitant]
     Active Substance: EZETIMIBE

REACTIONS (4)
  - Abdominal pain [Unknown]
  - Diarrhoea [Unknown]
  - Arthralgia [Unknown]
  - Diverticulitis [Unknown]

NARRATIVE: CASE EVENT DATE: 2019
